FAERS Safety Report 16312930 (Version 1)
Quarter: 2019Q2

REPORT INFORMATION
  Report Type: Spontaneous
  Country: ES (occurrence: ES)
  Receive Date: 20190515
  Receipt Date: 20190515
  Transmission Date: 20190711
  Serious: Yes (Other)
  Sender: FDA-Public Use
  Company Number: ES-ACCORD-127274

PATIENT
  Age: 3 Year
  Sex: Male

DRUGS (2)
  1. MERCAPTOPURINE/MERCAPTOPURINE ANHYDROUS [Suspect]
     Active Substance: MERCAPTOPURINE
     Indication: LANGERHANS^ CELL HISTIOCYTOSIS
  2. METHOTREXATE. [Suspect]
     Active Substance: METHOTREXATE
     Indication: LANGERHANS^ CELL HISTIOCYTOSIS

REACTIONS (7)
  - Norovirus test positive [Recovered/Resolved]
  - Malabsorption [Recovered/Resolved]
  - Mycobacterial infection [Recovered/Resolved]
  - Protein-losing gastroenteropathy [Recovered/Resolved]
  - Respiratory syncytial virus infection [Recovered/Resolved]
  - Febrile neutropenia [Recovered/Resolved]
  - Mesenteritis [Recovered/Resolved]
